FAERS Safety Report 4621253-0 (Version None)
Quarter: 2005Q1

REPORT INFORMATION
  Report Type: 
  Country: None (occurrence: None)
  Receive Date: 20050322
  Receipt Date: 20050322
  Transmission Date: 20050727
  Serious: Yes (Hospitalization)
  Sender: FDA-Public Use
  Company Number: None

PATIENT
  Age: 13 Year
  Sex: Male
  Weight: 53.978 kg

DRUGS (1)
  1. ZOLOFT [Suspect]
     Indication: DEPRESSION
     Dosage: 50 MG
     Dates: start: 20050101, end: 20050201

REACTIONS (1)
  - SUICIDE ATTEMPT [None]
